FAERS Safety Report 6789935-2 (Version None)
Quarter: 2010Q2

REPORT INFORMATION
  Report Type: 
  Country: None (occurrence: None)
  Receive Date: 20100624
  Receipt Date: 20100617
  Transmission Date: 20101027
  Serious: Yes (Hospitalization)
  Sender: FDA-Public Use
  Company Number: CN-JNJFOC-20100605416

PATIENT
  Age: 5 Year

DRUGS (1)
  1. IMODIUM [Suspect]
     Indication: DIARRHOEA
     Route: 048

REACTIONS (1)
  - LOSS OF CONSCIOUSNESS [None]
